FAERS Safety Report 4398696-6 (Version None)
Quarter: 2004Q3

REPORT INFORMATION
  Report Type: 
  Country: None (occurrence: None)
  Receive Date: 20040712
  Receipt Date: 20040628
  Transmission Date: 20050211
  Serious: Yes (Hospitalization)
  Sender: FDA-Public Use
  Company Number: 04P-167-0265456-00

PATIENT
  Age: 60 Year
  Sex: Female

DRUGS (2)
  1. BIAXIN [Suspect]
     Indication: SINUSITIS
     Dosage: 500 MG, 1 IN 1 D, PER ORAL
     Route: 048
     Dates: start: 20040207, end: 20040307
  2. PHENELIZINE SULFATE [Concomitant]

REACTIONS (3)
  - EYELID OEDEMA [None]
  - HEADACHE [None]
  - NIGHT SWEATS [None]
